FAERS Safety Report 20941793 (Version 11)
Quarter: 2022Q4

REPORT INFORMATION
  Report Type: Report from Study
  Country: JP (occurrence: JP)
  Receive Date: 20220610
  Receipt Date: 20221220
  Transmission Date: 20230113
  Serious: Yes (Hospitalization, Other)
  Sender: FDA-Public Use
  Company Number: JP-TAKEDA-2022TJP055603

PATIENT
  Age: 51 Year
  Sex: Female

DRUGS (4)
  1. ICATIBANT [Suspect]
     Active Substance: ICATIBANT ACETATE
     Indication: Hereditary angioedema
     Dosage: 30 MILLIGRAM, PRN
     Route: 058
     Dates: start: 202204
  2. ICATIBANT [Suspect]
     Active Substance: ICATIBANT ACETATE
     Indication: Hereditary angioedema
     Dosage: 30 MILLIGRAM, PRN
     Route: 058
     Dates: start: 202204
  3. CALONAL [Concomitant]
     Active Substance: ACETAMINOPHEN
     Indication: Headache
     Dosage: UNK
     Route: 048
     Dates: start: 2019
  4. BEROTRALSTAT HYDROCHLORIDE [Concomitant]
     Active Substance: BEROTRALSTAT HYDROCHLORIDE
     Dosage: UNK
     Route: 048
     Dates: start: 20221208

REACTIONS (24)
  - Meniere^s disease [Unknown]
  - Brain oedema [Unknown]
  - Wisdom teeth removal [Unknown]
  - Hereditary angioedema [Unknown]
  - Feeling abnormal [Unknown]
  - Dysphonia [Unknown]
  - Bone pain [Unknown]
  - Erythema annulare [Unknown]
  - Injection site pain [Unknown]
  - Headache [Unknown]
  - Overwork [Unknown]
  - Product use complaint [Unknown]
  - Back pain [Recovering/Resolving]
  - Discouragement [Unknown]
  - Physical deconditioning [Unknown]
  - Pharyngeal oedema [Unknown]
  - Malaise [Unknown]
  - Pallor [Unknown]
  - Performance status decreased [Unknown]
  - Feeling abnormal [Unknown]
  - Eye symptom [Unknown]
  - Dysstasia [Unknown]
  - Pharyngeal oedema [Unknown]
  - Facial pain [Unknown]

NARRATIVE: CASE EVENT DATE: 20220401
